FAERS Safety Report 23678799 (Version 1)
Quarter: 2024Q1

REPORT INFORMATION
  Report Type: Report from Study
  Country: IT (occurrence: IT)
  Receive Date: 20240327
  Receipt Date: 20240327
  Transmission Date: 20240410
  Serious: Yes (Other)
  Sender: FDA-Public Use
  Company Number: None

PATIENT
  Age: 78 Year
  Sex: Female

DRUGS (4)
  1. PACLITAXEL [Suspect]
     Active Substance: PACLITAXEL
     Indication: Breast cancer
     Dosage: 130 MILLIGRAM, QW (WEEKLY THERAPY)
     Route: 042
     Dates: start: 20240206, end: 20240206
  2. PACLITAXEL [Suspect]
     Active Substance: PACLITAXEL
     Dosage: 130 MILLIGRAM, QW (WEEKLY THERAPY)
     Route: 042
     Dates: start: 20240213, end: 20240213
  3. PERTUZUMAB [Suspect]
     Active Substance: PERTUZUMAB
     Indication: Breast cancer
     Dosage: 840 MILLIGRAM, Q21D (1 CYCLE - THERAPY EVERY 21 DAYS)
     Route: 042
     Dates: start: 20240206, end: 20240206
  4. TRASTUZUMAB [Suspect]
     Active Substance: TRASTUZUMAB
     Indication: Breast cancer
     Dosage: 500 MILLIGRAM, Q21D (1 CYCLE - THERAPY EVERY 21 DAYS)
     Route: 042
     Dates: start: 20240206, end: 20240206

REACTIONS (4)
  - Leukopenia [Recovering/Resolving]
  - Neutropenia [Recovering/Resolving]
  - Diarrhoea [Recovered/Resolved]
  - Off label use [Recovering/Resolving]

NARRATIVE: CASE EVENT DATE: 20240206
